FAERS Safety Report 9133856 (Version 1)
Quarter: 2013Q1

REPORT INFORMATION
  Report Type: Spontaneous
  Country: IT (occurrence: IT)
  Receive Date: 20130303
  Receipt Date: 20130303
  Transmission Date: 20140127
  Serious: Yes (Other)
  Sender: FDA-Public Use
  Company Number: IT-ROXANE LABORATORIES, INC.-2013-RO-00304RO

PATIENT
  Age: 32 Year
  Sex: Male

DRUGS (5)
  1. RISPERIDONE [Suspect]
     Indication: DEPRESSION
     Dosage: 4 MG
  2. LITHIUM CARBONATE [Suspect]
     Indication: DEPRESSION
     Dosage: 300 MG
  3. LITHIUM CARBONATE [Suspect]
     Dosage: 600 MG
  4. LORAZEPAM [Suspect]
     Dosage: 3 MG
  5. OLANZAPINE [Suspect]
     Indication: DEPRESSION
     Dosage: 10 MG

REACTIONS (3)
  - Leukopenia [Recovered/Resolved]
  - Tachyphrenia [Recovered/Resolved]
  - Obsessive thoughts [Recovered/Resolved]
